FAERS Safety Report 4300233-9 (Version None)
Quarter: 2004Q1

REPORT INFORMATION
  Report Type: 
  Country: None (occurrence: None)
  Receive Date: 20040218
  Receipt Date: 20040123
  Transmission Date: 20041129
  Serious: Yes (Death)
  Sender: FDA-Public Use
  Company Number: 20040100083

PATIENT
  Age: 75 Year
  Sex: Female
  Weight: 68 kg

DRUGS (7)
  1. HEPARIN INJ. (BAXTER) [Suspect]
     Dosage: 3400 OTHER DAILY
     Route: 050
     Dates: start: 20040121, end: 20040121
  2. NITROGLYCERIN OINTMENT [Concomitant]
  3. LASIX [Concomitant]
  4. DOPAMINE HCL [Concomitant]
  5. LIDOCAINE [Concomitant]
  6. VERSED [Concomitant]
  7. FENTANYL [Concomitant]

REACTIONS (2)
  - ACTIVATED PARTIAL THROMBOPLASTIN TIME PROLONGED [None]
  - COAGULATION TIME PROLONGED [None]
